FAERS Safety Report 6917096-5 (Version None)
Quarter: 2010Q3

REPORT INFORMATION
  Report Type: 
  Country: None (occurrence: None)
  Receive Date: 20100810
  Receipt Date: 20100730
  Transmission Date: 20110219
  Serious: Yes (Hospitalization)
  Sender: FDA-Public Use
  Company Number: B0662374A

PATIENT
  Sex: Female

DRUGS (6)
  1. LAMICTAL [Suspect]
     Indication: EPILEPSY
     Dosage: 25MG TWICE PER DAY
     Route: 048
     Dates: start: 20100514, end: 20100527
  2. LAMICTAL [Suspect]
     Dosage: 25MG PER DAY
     Route: 048
     Dates: start: 20100528, end: 20100618
  3. IRESSA [Suspect]
     Indication: LUNG NEOPLASM MALIGNANT
     Dosage: 250MG TWICE PER DAY
     Route: 048
     Dates: end: 20100530
  4. IRESSA [Suspect]
     Dosage: 250MG WEEKLY
     Route: 048
     Dates: start: 20100601, end: 20100624
  5. DEPAKENE [Suspect]
     Indication: EPILEPSY
     Dosage: 600MG PER DAY
     Route: 048
  6. GABAPENTIN [Concomitant]
     Indication: EPILEPSY
     Dosage: 900MG PER DAY
     Route: 048
     Dates: start: 20100621

REACTIONS (14)
  - ALANINE AMINOTRANSFERASE INCREASED [None]
  - ASPARTATE AMINOTRANSFERASE INCREASED [None]
  - C-REACTIVE PROTEIN INCREASED [None]
  - COUGH [None]
  - ERYTHEMA MULTIFORME [None]
  - EYE DISCHARGE [None]
  - EYELID OEDEMA [None]
  - HAEMORRHAGE [None]
  - HYPERTHERMIA [None]
  - PYREXIA [None]
  - SKIN EROSION [None]
  - STEVENS-JOHNSON SYNDROME [None]
  - STOMATITIS [None]
  - WHITE BLOOD CELL COUNT INCREASED [None]
